FAERS Safety Report 4533803-3 (Version None)
Quarter: 2004Q4

REPORT INFORMATION
  Report Type: 
  Country: None (occurrence: None)
  Receive Date: 20041221
  Receipt Date: 20041215
  Transmission Date: 20050328
  Serious: Yes (Disabling)
  Sender: FDA-Public Use
  Company Number: US-MERCK-0412USA01999

PATIENT
  Sex: Female

DRUGS (6)
  1. ZOCOR [Suspect]
     Indication: BLOOD CHOLESTEROL INCREASED
     Route: 048
     Dates: start: 19950101, end: 20000101
  2. ZOCOR [Suspect]
     Indication: MYOCARDIAL INFARCTION
     Route: 048
     Dates: start: 19950101, end: 20000101
  3. PRINIVIL [Concomitant]
     Route: 065
  4. ZEBETA [Concomitant]
     Route: 065
  5. NORVASC [Concomitant]
     Route: 065
  6. DIURETIC (UNSPECIFIED) [Concomitant]
     Route: 065

REACTIONS (1)
  - PAIN IN EXTREMITY [None]
